FAERS Safety Report 5728266-6 (Version None)
Quarter: 2008Q2

REPORT INFORMATION
  Report Type: 
  Country: None (occurrence: None)
  Receive Date: 20080506
  Receipt Date: 20080430
  Transmission Date: 20081010
  Serious: No
  Sender: FDA-Public Use
  Company Number: US-JNJFOC-20080500490

PATIENT
  Age: 10 Year
  Sex: Female
  Weight: 27.22 kg

DRUGS (6)
  1. RISPERDAL [Suspect]
     Indication: OPPOSITIONAL DEFIANT DISORDER
     Route: 048
  2. INVEGA [Suspect]
     Indication: OPPOSITIONAL DEFIANT DISORDER
     Route: 048
  3. METADATE CD [Concomitant]
     Indication: ATTENTION DEFICIT/HYPERACTIVITY DISORDER
     Route: 048
  4. CLONIDINE HCL [Concomitant]
     Indication: ATTENTION DEFICIT/HYPERACTIVITY DISORDER
     Route: 048
  5. FLOVENT [Concomitant]
     Indication: ASTHMA
     Route: 055
  6. CLARITIN [Concomitant]
     Indication: MULTIPLE ALLERGIES
     Route: 048

REACTIONS (2)
  - INCREASED APPETITE [None]
  - WEIGHT INCREASED [None]
